FAERS Safety Report 23456060 (Version 1)
Quarter: 2024Q1

REPORT INFORMATION
  Report Type: Spontaneous
  Country: US (occurrence: US)
  Receive Date: 20240130
  Receipt Date: 20240130
  Transmission Date: 20240409
  Serious: No
  Sender: FDA-Public Use
  Company Number: US-HALEON-USCH2024AMR005075

PATIENT
  Sex: Female

DRUGS (1)
  1. IBUPROFEN [Suspect]
     Active Substance: IBUPROFEN
     Indication: Pain
     Dosage: UNK

REACTIONS (8)
  - Osteoarthritis [Unknown]
  - Joint swelling [Unknown]
  - Musculoskeletal stiffness [Recovered/Resolved]
  - Dry mouth [Unknown]
  - Vision blurred [Unknown]
  - Dyspnoea [Recovering/Resolving]
  - Blood creatinine increased [Unknown]
  - Back pain [Unknown]
